FAERS Safety Report 19191623 (Version 1)
Quarter: 2021Q2

REPORT INFORMATION
  Report Type: Spontaneous
  Country: CN (occurrence: CN)
  Receive Date: 20210429
  Receipt Date: 20210429
  Transmission Date: 20210717
  Serious: Yes (Other)
  Sender: FDA-Public Use
  Company Number: CN-009507513-2104CHN007357

PATIENT
  Age: 56 Year
  Sex: Female
  Weight: 45 kg

DRUGS (1)
  1. TIENAM [Suspect]
     Active Substance: CILASTATIN SODIUM\IMIPENEM
     Indication: ANTI-INFECTIVE THERAPY
     Dosage: 0.5G, QID
     Route: 041
     Dates: start: 20210316, end: 20210321

REACTIONS (5)
  - Delirium [Recovering/Resolving]
  - Thinking abnormal [Recovering/Resolving]
  - Screaming [Recovering/Resolving]
  - Speech disorder [Recovering/Resolving]
  - Mood swings [Recovering/Resolving]

NARRATIVE: CASE EVENT DATE: 20210321
